FAERS Safety Report 7046508-4 (Version None)
Quarter: 2010Q4

REPORT INFORMATION
  Report Type: 
  Country: None (occurrence: None)
  Receive Date: 20101014
  Receipt Date: 20101011
  Transmission Date: 20110411
  Serious: Yes (Death)
  Sender: FDA-Public Use
  Company Number: GB-GILEAD-2010-0030808

PATIENT
  Sex: Female
  Weight: 53 kg

DRUGS (3)
  1. ATRIPLA [Suspect]
     Indication: HIV INFECTION
     Route: 048
     Dates: start: 20080501
  2. TRUVADA [Suspect]
     Indication: HIV INFECTION
     Dates: start: 20060301, end: 20080501
  3. SUSTIVA [Suspect]
     Indication: HIV INFECTION
     Dates: start: 20060301, end: 20080501

REACTIONS (1)
  - COMPLETED SUICIDE [None]
